FAERS Safety Report 8815999 (Version 1)
Quarter: 2012Q4

REPORT INFORMATION
  Report Type: 
  Country: US (occurrence: US)
  Receive Date: 20120928
  Receipt Date: 20120928
  Transmission Date: 20130627
  Serious: Yes (Other)
  Sender: FDA-Public Use
  Company Number: US-VIIV HEALTHCARE LIMITED-A0974621A

PATIENT
  Age: 43 Year
  Sex: Male
  Weight: 95 kg

DRUGS (6)
  1. EPZICOM [Suspect]
     Indication: HIV INFECTION
     Dosage: 1TAB Per day
     Route: 048
     Dates: start: 20120313, end: 20120319
  2. PREZISTA [Concomitant]
     Dosage: 2TABS Per day
     Route: 048
     Dates: start: 20110308, end: 20120319
  3. NORVIR [Concomitant]
     Dosage: 1TAB Per day
     Route: 048
     Dates: start: 20110308, end: 20120319
  4. BACLOFEN [Concomitant]
     Dosage: 1TAB As required
     Route: 048
     Dates: start: 20110208
  5. LISINOPRIL [Concomitant]
     Dosage: 1TAB Per day
     Route: 048
  6. PROZAC [Concomitant]
     Dosage: 1TAB Per day
     Route: 048

REACTIONS (6)
  - Hepatic enzyme increased [Recovered/Resolved]
  - Alanine aminotransferase increased [Recovered/Resolved]
  - Aspartate aminotransferase increased [Recovered/Resolved]
  - Fatigue [Recovered/Resolved]
  - Pyrexia [Recovered/Resolved]
  - Hypersensitivity [Recovered/Resolved]
